FAERS Safety Report 4462894-3 (Version None)
Quarter: 2004Q3

REPORT INFORMATION
  Report Type: 
  Country: None (occurrence: None)
  Receive Date: 20040927
  Receipt Date: 20040914
  Transmission Date: 20050211
  Serious: Yes (Hospitalization)
  Sender: FDA-Public Use
  Company Number: 2004-04048

PATIENT
  Age: 58 Year
  Sex: Male

DRUGS (1)
  1. ENALAPRIL MALEATE (WATSON  LABORATORIES) (ENALAPRIL MALEATE) TABLET, 2 [Suspect]
     Indication: HYPERTENSION
     Dosage: 1 TABLET, DAILY, ORAL
     Route: 048

REACTIONS (3)
  - HEPATITIS [None]
  - HEPATITIS CHOLESTATIC [None]
  - VANISHING BILE DUCT SYNDROME [None]
